FAERS Safety Report 5813078-5 (Version None)
Quarter: 2008Q3

REPORT INFORMATION
  Report Type: 
  Country: None (occurrence: None)
  Receive Date: 20080717
  Receipt Date: 20071231
  Transmission Date: 20090109
  Serious: No
  Sender: FDA-Public Use
  Company Number: A0700862A

PATIENT
  Age: 23 Year
  Sex: Female

DRUGS (1)
  1. NICORETTE [Suspect]
     Dates: start: 20071228

REACTIONS (8)
  - CHEST DISCOMFORT [None]
  - COLD SWEAT [None]
  - FEELING ABNORMAL [None]
  - FEELING HOT [None]
  - FEELING JITTERY [None]
  - HEART RATE INCREASED [None]
  - NAUSEA [None]
  - TREMOR [None]
